FAERS Safety Report 8521673-8 (Version None)
Quarter: 2012Q3

REPORT INFORMATION
  Report Type: 
  Country: None (occurrence: None)
  Receive Date: 20120719
  Receipt Date: 20120718
  Transmission Date: 20120928
  Serious: Yes (Life-Threatening)
  Sender: FDA-Public Use
  Company Number: PHFR2012GB004041

PATIENT
  Age: 52 Year
  Sex: Female

DRUGS (11)
  1. LACTULOSE [Concomitant]
     Dosage: 10 ML,
  2. FERROUS FUMARATE [Concomitant]
     Dosage: 210 MG, TID
  3. LEVOTHYROXINE SODIUM [Concomitant]
     Dosage: 100 UG, DAILY
  4. ALBUTEROL SULATE [Concomitant]
     Dosage: 2 DF
  5. MOMETASONE FUROATE [Concomitant]
     Dosage: 2 DF
  6. THIAMINE [Concomitant]
     Dosage: 100 MG, DAILY
  7. VITAMIN B NOS [Concomitant]
     Dosage: 1 DF, UNK
  8. LETROZOLE [Suspect]
     Indication: BREAST CANCER
     Dosage: 2.5 MG, DAILY
     Route: 048
     Dates: start: 20120506, end: 20120516
  9. BECLOMETHASONE DIPROPIONATE [Concomitant]
     Dosage: 2 DF, UNK
  10. DESLORATADINE [Concomitant]
     Dosage: 5 MG, QD
  11. OMEPRAZOLE [Concomitant]
     Dosage: 20 MG DAILY

REACTIONS (2)
  - LIVER DISORDER [None]
  - JAUNDICE [None]
